FAERS Safety Report 8509924-7 (Version None)
Quarter: 2012Q3

REPORT INFORMATION
  Report Type: 
  Country: None (occurrence: None)
  Receive Date: 20120713
  Receipt Date: 20120703
  Transmission Date: 20120928
  Serious: No
  Sender: FDA-Public Use
  Company Number: US-ASTRAZENECA-2012SE45803

PATIENT
  Sex: Female

DRUGS (4)
  1. OTC ANTACIDS [Concomitant]
  2. OMEPRAZOLE [Suspect]
     Route: 048
  3. NEXIUM [Suspect]
     Indication: GASTRITIS
     Route: 048
  4. CARAFATE [Concomitant]

REACTIONS (3)
  - OFF LABEL USE [None]
  - ABDOMINAL PAIN [None]
  - DRUG INEFFECTIVE [None]
